FAERS Safety Report 5700284-3 (Version None)
Quarter: 2008Q2

REPORT INFORMATION
  Report Type: 
  Country: None (occurrence: None)
  Receive Date: 20080410
  Receipt Date: 20080326
  Transmission Date: 20081010
  Serious: Yes (Life-Threatening, Congenital Anomaly)
  Sender: FDA-Public Use
  Company Number: A0690850A

PATIENT
  Sex: Male

DRUGS (7)
  1. PAXIL [Suspect]
     Indication: ANXIETY
     Dosage: 10MG PER DAY
     Dates: start: 20030701, end: 20040801
  2. PAROXETINE HCL [Suspect]
     Indication: DEPRESSION
     Dosage: 10MG PER DAY
     Dates: start: 20031101, end: 20040101
  3. PROMETHAZINE [Concomitant]
     Dates: start: 20030801
  4. CIMETIDINE [Concomitant]
     Dates: start: 20040201, end: 20040301
  5. IBUPROFEN [Concomitant]
     Dates: start: 20040301, end: 20040401
  6. VITAMIN TAB [Concomitant]
  7. TAGAMET [Concomitant]
     Dates: start: 20040204

REACTIONS (13)
  - ANXIETY [None]
  - ASTHMA [None]
  - ATRIAL SEPTAL DEFECT [None]
  - CARDIAC MURMUR [None]
  - CONGENITAL ANOMALY [None]
  - DRUG EXPOSURE DURING PREGNANCY [None]
  - HEART VALVE INCOMPETENCE [None]
  - INJURY [None]
  - LUNG DISORDER [None]
  - MITRAL VALVE PROLAPSE [None]
  - PAIN [None]
  - SCAR [None]
  - VENTRICULAR SEPTAL DEFECT [None]
